FAERS Safety Report 5990299-2 (Version None)
Quarter: 2008Q4

REPORT INFORMATION
  Report Type: 
  Country: None (occurrence: None)
  Receive Date: 20081211
  Receipt Date: 20081201
  Transmission Date: 20090506
  Serious: Yes (Death)
  Sender: FDA-Public Use
  Company Number: FR-AMGEN-US291083

PATIENT
  Sex: Female
  Weight: 67 kg

DRUGS (1)
  1. ENBREL [Suspect]
     Indication: ASTHMA
     Route: 058
     Dates: start: 20060401, end: 20060701

REACTIONS (2)
  - ARTHRALGIA [None]
  - PANCREATIC CARCINOMA METASTATIC [None]
